FAERS Safety Report 8139797-6 (Version None)
Quarter: 2012Q1

REPORT INFORMATION
  Report Type: 
  Country: None (occurrence: None)
  Receive Date: 20120215
  Receipt Date: 20120207
  Transmission Date: 20120608
  Serious: Yes (Hospitalization)
  Sender: FDA-Public Use
  Company Number: US-MILLENNIUM PHARMACEUTICALS, INC.-2012-00939

PATIENT
  Sex: Male
  Weight: 102.7 kg

DRUGS (4)
  1. LISINOPRIL [Concomitant]
     Indication: PRODUCT USED FOR UNKNOWN INDICATION
     Dosage: 40 MG, UNK
     Route: 048
  2. PANITUMUMAB [Suspect]
     Indication: COLON CANCER
     Dosage: 616.2 MG, UNK
     Dates: start: 20120117
  3. AMBIEN [Concomitant]
     Indication: PRODUCT USED FOR UNKNOWN INDICATION
     Dosage: 10 MG, UNK
  4. VELCADE [Suspect]
     Indication: COLON CANCER
     Dosage: 3.6 MG, CYCLIC
     Route: 041
     Dates: start: 20120131, end: 20120131

REACTIONS (2)
  - HYPOMAGNESAEMIA [None]
  - HYPERCALCAEMIA [None]
